FAERS Safety Report 25333316 (Version 2)
Quarter: 2025Q2

REPORT INFORMATION
  Report Type: Spontaneous
  Country: DE (occurrence: DE)
  Receive Date: 20250519
  Receipt Date: 20250623
  Transmission Date: 20250716
  Serious: Yes (Other)
  Sender: ABBVIE
  Company Number: DE-ABBVIE-6282254

PATIENT
  Sex: Male

DRUGS (1)
  1. OZURDEX [Suspect]
     Active Substance: DEXAMETHASONE
     Indication: Diabetic retinal oedema
     Route: 050
     Dates: end: 20250412

REACTIONS (5)
  - Medical device removal [Recovering/Resolving]
  - Device dislocation [Recovered/Resolved with Sequelae]
  - Ciliary zonular weakness [Recovering/Resolving]
  - Pseudophakia [Unknown]
  - Cataract [Unknown]

NARRATIVE: CASE EVENT DATE: 20250429
